FAERS Safety Report 9489622 (Version 1)
Quarter: 2013Q3

REPORT INFORMATION
  Report Type: Spontaneous
  Country: US (occurrence: US)
  Receive Date: 20130829
  Receipt Date: 20130829
  Transmission Date: 20140515
  Serious: Yes (Other)
  Sender: FDA-Public Use
  Company Number: CHPA2013US013447

PATIENT
  Age: 76 Year
  Sex: Female

DRUGS (1)
  1. VOLTAREN GEL [Suspect]
     Indication: RASH
     Dosage: 2 G, BID
     Route: 061
     Dates: start: 201210

REACTIONS (4)
  - Sinusitis [Not Recovered/Not Resolved]
  - Disease recurrence [Unknown]
  - Off label use [Not Recovered/Not Resolved]
  - Therapeutic response unexpected [Unknown]
